FAERS Safety Report 11867477 (Version 1)
Quarter: 2015Q4

REPORT INFORMATION
  Report Type: Spontaneous
  Country: US (occurrence: None)
  Receive Date: 20151223
  Receipt Date: 20151223
  Transmission Date: 20160305
  Serious: Yes (Other)
  Sender: FDA-Public Use
  Company Number: None

PATIENT
  Age: 20 Year
  Sex: Female

DRUGS (5)
  1. NORDITROPIN [Suspect]
     Active Substance: SOMATROPIN
     Indication: HYPOPITUITARISM
     Dosage: 4 DAYS PER WEEK?PREVIOUSLY FILLED ELSEWHERE
     Route: 058
  2. SOLU-CORTEF [Concomitant]
     Active Substance: HYDROCORTISONE SODIUM SUCCINATE
  3. LEVOTHYROXINE. [Concomitant]
     Active Substance: LEVOTHYROXINE
  4. HYDROCORTISONE. [Concomitant]
     Active Substance: HYDROCORTISONE
  5. DESMOPRESSIN [Concomitant]
     Active Substance: DESMOPRESSIN

REACTIONS (3)
  - Drug dose omission [None]
  - Vomiting [None]
  - Back pain [None]

NARRATIVE: CASE EVENT DATE: 201512
